FAERS Safety Report 8126488-0 (Version None)
Quarter: 2012Q1

REPORT INFORMATION
  Report Type: 
  Country: None (occurrence: None)
  Receive Date: 20120209
  Receipt Date: 20120131
  Transmission Date: 20120608
  Serious: Yes (Hospitalization, Other)
  Sender: FDA-Public Use
  Company Number: US-ASTRAZENECA-2010SE51347

PATIENT
  Age: 74 Year
  Sex: Female

DRUGS (1)
  1. NEXIUM [Suspect]
     Route: 048

REACTIONS (7)
  - RENAL DISORDER [None]
  - CHEST DISCOMFORT [None]
  - DEAFNESS [None]
  - CARDIAC DISORDER [None]
  - BLOOD GLUCOSE ABNORMAL [None]
  - PNEUMONIA [None]
  - BLINDNESS [None]
